FAERS Safety Report 21647630 (Version 1)
Quarter: 2022Q4

REPORT INFORMATION
  Report Type: Report from Study
  Country: US (occurrence: US)
  Receive Date: 20221128
  Receipt Date: 20221128
  Transmission Date: 20230113
  Serious: No
  Sender: FDA-Public Use
  Company Number: US-ABBVIE-4166922

PATIENT
  Age: 52 Year
  Sex: Female

DRUGS (5)
  1. HUMIRA [Suspect]
     Active Substance: ADALIMUMAB
     Indication: Psoriatic arthropathy
     Dosage: STRENGTH- 40 MG
     Route: 058
     Dates: start: 202206, end: 20221013
  2. PFIZER-BIONTECH COVID-19 VACCINE [Concomitant]
     Active Substance: TOZINAMERAN
     Indication: COVID-19 immunisation
     Dosage: 1ST DOSE FREQUENCY ONE IN ONCE
     Route: 030
     Dates: start: 20210424, end: 20210424
  3. PFIZER-BIONTECH COVID-19 VACCINE [Concomitant]
     Active Substance: TOZINAMERAN
     Indication: COVID-19 immunisation
     Dosage: 2ND DOSE FREQUENCY ONE IN ONCE
     Dates: start: 20210515, end: 20210515
  4. MODERNA COVID-19 VACCINE [Concomitant]
     Active Substance: ELASOMERAN
     Indication: COVID-19 immunisation
     Dosage: BOOSTER DOSE FREQUENCY ONE IN ONCE
     Route: 030
     Dates: start: 20211123, end: 20211123
  5. TALTZ [Suspect]
     Active Substance: IXEKIZUMAB
     Indication: Product used for unknown indication
     Route: 065

REACTIONS (4)
  - Drug ineffective [Unknown]
  - Rash pruritic [Unknown]
  - Arthropathy [Unknown]
  - Thermal burn [Unknown]

NARRATIVE: CASE EVENT DATE: 20221001
